FAERS Safety Report 4516963-X (Version None)
Quarter: 2004Q4

REPORT INFORMATION
  Report Type: 
  Country: None (occurrence: None)
  Receive Date: 20041029
  Receipt Date: 20040921
  Transmission Date: 20050328
  Serious: No
  Sender: FDA-Public Use
  Company Number: 2004-120510-NL

PATIENT
  Age: 35 Year
  Sex: Female
  Weight: 57.7 kg

DRUGS (4)
  1. NUVARING [Suspect]
     Dosage: DF DAILY VAGINAL
     Route: 067
     Dates: start: 20040830
  2. UNSPECIFIED ORAL MEDICATIONS [Concomitant]
  3. VAGINAL SUPPOSITORY [Concomitant]
  4. VAGINAL CREAM [Concomitant]

REACTIONS (1)
  - DEVICE FAILURE [None]
